FAERS Safety Report 5816148-0 (Version None)
Quarter: 2008Q3

REPORT INFORMATION
  Report Type: 
  Country: None (occurrence: None)
  Receive Date: 20080721
  Receipt Date: 20080710
  Transmission Date: 20090109
  Serious: Yes (Other)
  Sender: FDA-Public Use
  Company Number: US-JNJFOC-20080703778

PATIENT
  Sex: Female
  Weight: 68.04 kg

DRUGS (6)
  1. DURAGESIC-100 [Suspect]
     Indication: PAIN
     Route: 062
  2. FLEXERIL [Concomitant]
     Indication: HYPOTONIA
     Route: 048
  3. TOPAMAX [Concomitant]
     Indication: NEURALGIA
     Route: 048
  4. GABITRIL [Concomitant]
     Indication: NEURALGIA
     Route: 048
  5. NEURONTIN [Concomitant]
     Indication: NEURALGIA
     Route: 048
  6. TEGRETOL [Concomitant]
     Indication: NEURALGIA
     Route: 048

REACTIONS (5)
  - INCORRECT DRUG ADMINISTRATION DURATION [None]
  - PAIN [None]
  - PHARMACEUTICAL PRODUCT COMPLAINT [None]
  - SWELLING [None]
  - WITHDRAWAL SYNDROME [None]
